FAERS Safety Report 9925142 (Version 1)
Quarter: 2014Q1

REPORT INFORMATION
  Report Type: Spontaneous
  Country: US (occurrence: None)
  Receive Date: 20140225
  Receipt Date: 20140225
  Transmission Date: 20141002
  Serious: Yes (Disabling)
  Sender: FDA-Public Use
  Company Number: None

PATIENT
  Age: 27 Year
  Sex: Female
  Weight: 52.16 kg

DRUGS (1)
  1. NUVARING [Suspect]
     Indication: CONTRACEPTION
     Dosage: INSERT 1 RING EVERY 3 WEEKS VAGINAL
     Dates: start: 20140101, end: 20140201

REACTIONS (3)
  - Hypersensitivity [None]
  - Dermatitis contact [None]
  - Pruritus [None]
